FAERS Safety Report 17044461 (Version 1)
Quarter: 2019Q4

REPORT INFORMATION
  Report Type: Spontaneous
  Country: US (occurrence: US)
  Receive Date: 20191117
  Receipt Date: 20191117
  Transmission Date: 20200122
  Serious: Yes (Other)
  Sender: FDA-Public Use
  Company Number: None

PATIENT
  Age: 68 Year
  Sex: Female
  Weight: 85.05 kg

DRUGS (1)
  1. SAVELLA [Suspect]
     Active Substance: MILNACIPRAN HYDROCHLORIDE
     Indication: FIBROMYALGIA
     Dosage: ?          QUANTITY:1 TABLET(S);?
     Route: 048
     Dates: end: 20191115

REACTIONS (7)
  - Asthenia [None]
  - Decreased appetite [None]
  - Pain in extremity [None]
  - Abdominal pain upper [None]
  - Vomiting [None]
  - Drug ineffective [None]
  - Chest pain [None]

NARRATIVE: CASE EVENT DATE: 20191115
